FAERS Safety Report 5424649-2 (Version None)
Quarter: 2007Q3

REPORT INFORMATION
  Report Type: 
  Country: None (occurrence: None)
  Receive Date: 20070824
  Receipt Date: 20070821
  Transmission Date: 20080115
  Serious: Yes (Life-Threatening, Hospitalization, Other)
  Sender: FDA-Public Use
  Company Number: PHBS2007BR13955

PATIENT
  Age: 80 Year
  Sex: Female
  Weight: 65 kg

DRUGS (6)
  1. FORASEQ [Suspect]
     Dosage: 12/400 UG, Q12H
     Dates: start: 19870101, end: 20050101
  2. FORASEQ [Suspect]
     Dates: start: 20070601
  3. AEROLEX [Concomitant]
  4. PREDNISONE TAB [Concomitant]
     Route: 048
  5. NIFEDIPINE [Concomitant]
     Dosage: 20 MG/D
     Route: 048
  6. DILTIAZEM HYDROCHLORIDE [Suspect]
     Indication: HYPERTENSION
     Dosage: 30 MG/D
     Route: 048

REACTIONS (6)
  - ASTHMA [None]
  - DEPRESSION [None]
  - DYSPNOEA [None]
  - PRURITUS [None]
  - RASH ERYTHEMATOUS [None]
  - SKIN EXFOLIATION [None]
